FAERS Safety Report 4373740-0 (Version None)
Quarter: 2004Q2

REPORT INFORMATION
  Report Type: 
  Country: None (occurrence: None)
  Receive Date: 20040607
  Receipt Date: 20040607
  Transmission Date: 20050107
  Serious: Yes (Hospitalization)
  Sender: FDA-Public Use
  Company Number: None

PATIENT
  Sex: Male
  Weight: 87 kg

DRUGS (1)
  1. DISULFIRAM [Suspect]
     Dosage: 10 MG QAM ORAL
     Route: 048

REACTIONS (4)
  - ALCOHOL INTERACTION [None]
  - DIZZINESS [None]
  - DYSPNOEA [None]
  - NAUSEA [None]
